FAERS Safety Report 4595923-7 (Version None)
Quarter: 2005Q1

REPORT INFORMATION
  Report Type: 
  Country: None (occurrence: None)
  Receive Date: 20050224
  Receipt Date: 20050224
  Transmission Date: 20050727
  Serious: Yes (Other)
  Sender: FDA-Public Use
  Company Number: None

PATIENT
  Sex: Female

DRUGS (1)
  1. VIOXX [Suspect]
     Dosage: 1 PER DAY
     Dates: start: 19960115, end: 20020919

REACTIONS (2)
  - HAEMORRHAGE SUBCUTANEOUS [None]
  - SKIN DISCOLOURATION [None]
